FAERS Safety Report 8568977 (Version 4)
Quarter: 2013Q3

REPORT INFORMATION
  Report Type: Spontaneous
  Country: US (occurrence: US)
  Receive Date: 20120518
  Receipt Date: 20130724
  Transmission Date: 20140515
  Serious: Yes (Hospitalization)
  Sender: FDA-Public Use
  Company Number: US-JNJFOC-20120507537

PATIENT
  Age: 42 Year
  Sex: Female
  Weight: 154.22 kg

DRUGS (7)
  1. REMICADE [Suspect]
     Indication: PSORIATIC ARTHROPATHY
     Route: 042
     Dates: start: 20101116
  2. REMICADE [Suspect]
     Indication: PSORIATIC ARTHROPATHY
     Dosage: DOSE ALSO REPORTED AS 660 MG
     Route: 042
     Dates: start: 20110802, end: 20110802
  3. METHOTREXATE [Suspect]
     Indication: PSORIATIC ARTHROPATHY
     Route: 048
     Dates: start: 201010, end: 20120131
  4. PREDNISONE [Concomitant]
     Dosage: TAPER AS NECESSARY
     Route: 065
  5. OTHER THERAPEUTIC PRODUCT [Concomitant]
     Route: 065
  6. BIOTIN [Concomitant]
     Route: 065
  7. VITAMIN D [Concomitant]
     Route: 065

REACTIONS (18)
  - Costochondritis [Unknown]
  - Chest pain [Unknown]
  - Pericardial effusion [Unknown]
  - Compression fracture [Unknown]
  - Weight increased [Unknown]
  - Drug hypersensitivity [Unknown]
  - Pneumonitis [Unknown]
  - Dyspnoea [Unknown]
  - Lymphadenopathy mediastinal [Unknown]
  - Back pain [Unknown]
  - Cough [Unknown]
  - Hyperhidrosis [Unknown]
  - Sleep apnoea syndrome [Unknown]
  - Nasopharyngitis [Unknown]
  - Interstitial lung disease [Unknown]
  - Pulmonary fibrosis [Unknown]
  - Pulmonary mass [Not Recovered/Not Resolved]
  - Pneumonia [Unknown]
